FAERS Safety Report 7531229-1 (Version None)
Quarter: 2011Q2

REPORT INFORMATION
  Report Type: 
  Country: None (occurrence: None)
  Receive Date: 20110531
  Receipt Date: 20110507
  Transmission Date: 20111010
  Serious: Yes (Other)
  Sender: FDA-Public Use
  Company Number: WAES 1105USA02671

PATIENT

DRUGS (3)
  1. TAB RALTEGRAVIR POTASSIUM [Suspect]
     Dates: start: 20110228, end: 20110507
  2. SULFAMETHOXAZOLE AND TRIMETHOPRIM [Suspect]
     Dates: start: 20060613, end: 20110507
  3. LOPINAVIR/RITONAVIR [Suspect]
     Dates: start: 20110218

REACTIONS (7)
  - PYREXIA [None]
  - DYSPNOEA [None]
  - COUGH [None]
  - MEASLES [None]
  - HYPERSENSITIVITY [None]
  - CHEST DISCOMFORT [None]
  - PNEUMONIA [None]
